FAERS Safety Report 17518777 (Version 4)
Quarter: 2020Q2

REPORT INFORMATION
  Report Type: Spontaneous
  Country: US (occurrence: US)
  Receive Date: 20200309
  Receipt Date: 20200508
  Transmission Date: 20200713
  Serious: No
  Sender: FDA-Public Use
  Company Number: US-NEUROCRINE BIOSCIENCES INC.-2020NBI00664

PATIENT
  Age: 54 Year
  Sex: Female

DRUGS (4)
  1. INGREZZA [Suspect]
     Active Substance: VALBENAZINE
     Route: 048
  2. VRAYLAR [Concomitant]
     Active Substance: CARIPRAZINE
     Indication: MOVEMENT DISORDER
  3. INGREZZA [Suspect]
     Active Substance: VALBENAZINE
     Indication: TARDIVE DYSKINESIA
     Route: 048
     Dates: start: 20180814
  4. INGREZZA [Suspect]
     Active Substance: VALBENAZINE
     Route: 048

REACTIONS (5)
  - Therapeutic product effect incomplete [Unknown]
  - Hypoaesthesia [Unknown]
  - Muscle spasms [Unknown]
  - Motor dysfunction [Unknown]
  - Dystonia [Unknown]

NARRATIVE: CASE EVENT DATE: 20200210
